FAERS Safety Report 14261856 (Version 3)
Quarter: 2018Q1

REPORT INFORMATION
  Report Type: Report from Study
  Country: None (occurrence: DE)
  Receive Date: 20171208
  Receipt Date: 20180309
  Transmission Date: 20180508
  Serious: Yes (Hospitalization, Other)
  Sender: FDA-Public Use
  Company Number: DE-ABBVIE-17K-062-2186353-00

PATIENT
  Age: 26 Year
  Sex: Female

DRUGS (1)
  1. HUMIRA [Suspect]
     Active Substance: ADALIMUMAB
     Indication: PSORIATIC ARTHROPATHY
     Route: 058
     Dates: start: 20170210, end: 20171215

REACTIONS (13)
  - Dysphonia [Recovering/Resolving]
  - Device loosening [Recovering/Resolving]
  - Dermatitis contact [Not Recovered/Not Resolved]
  - Fatigue [Recovering/Resolving]
  - Pruritus [Not Recovered/Not Resolved]
  - Impaired healing [Recovering/Resolving]
  - Psoriasis [Not Recovered/Not Resolved]
  - Seizure [Recovering/Resolving]
  - Surgery [Recovering/Resolving]
  - Bladder catheterisation [Not Recovered/Not Resolved]
  - Sensitivity to weather change [Unknown]
  - Listless [Recovering/Resolving]
  - Infection [Unknown]

NARRATIVE: CASE EVENT DATE: 201801
